FAERS Safety Report 11218305 (Version 2)
Quarter: 2015Q3

REPORT INFORMATION
  Report Type: Spontaneous
  Country: US (occurrence: US)
  Receive Date: 20150625
  Receipt Date: 20150924
  Transmission Date: 20151125
  Serious: Yes (Other)
  Sender: FDA-Public Use
  Company Number: US-ASTRAZENECA-2015SE61019

PATIENT
  Age: 21436 Day
  Sex: Female
  Weight: 131.5 kg

DRUGS (13)
  1. NOVALOG [Concomitant]
     Dosage: 80
     Dates: start: 201201
  2. JANUVIA [Concomitant]
     Active Substance: SITAGLIPTIN PHOSPHATE
     Dates: start: 201404
  3. METFORMIN [Concomitant]
     Active Substance: METFORMIN HYDROCHLORIDE
     Dates: start: 200206
  4. GLUCOPHAGE [Concomitant]
     Active Substance: METFORMIN HYDROCHLORIDE
  5. GLIPIZIDE. [Concomitant]
     Active Substance: GLIPIZIDE
     Dates: start: 200202
  6. INSULIN HUMAN [Concomitant]
     Active Substance: INSULIN HUMAN
  7. ROSIGLITAZONE [Concomitant]
     Active Substance: ROSIGLITAZONE
     Dates: start: 200701
  8. BYETTA [Suspect]
     Active Substance: EXENATIDE
     Route: 065
     Dates: start: 200902, end: 200904
  9. NOVALOG [Concomitant]
     Dosage: 300 UNITS
     Dates: start: 201008
  10. VYTORIN [Concomitant]
     Active Substance: EZETIMIBE\SIMVASTATIN
  11. JANUVIA [Concomitant]
     Active Substance: SITAGLIPTIN PHOSPHATE
     Dates: start: 201306
  12. LANTUS [Concomitant]
     Active Substance: INSULIN GLARGINE
     Dosage: 90 UNITS
     Dates: start: 200607
  13. LEVENIR [Concomitant]
     Dosage: 100 UNITS
     Dates: start: 200804

REACTIONS (5)
  - Thyroid neoplasm [Unknown]
  - Medullary thyroid cancer [Unknown]
  - Hypothyroidism [Unknown]
  - Drug hypersensitivity [Unknown]
  - Goitre [Unknown]

NARRATIVE: CASE EVENT DATE: 20150528
